FAERS Safety Report 6265513-9 (Version None)
Quarter: 2009Q3

REPORT INFORMATION
  Report Type: 
  Country: None (occurrence: None)
  Receive Date: 20090713
  Receipt Date: 20090629
  Transmission Date: 20100115
  Serious: Yes (Hospitalization)
  Sender: FDA-Public Use
  Company Number: SE-ELI_LILLY_AND_COMPANY-SE200906000405

PATIENT
  Sex: Male
  Weight: 76 kg

DRUGS (3)
  1. DULOXETINE HYDROCHLORIDE [Suspect]
     Indication: MAJOR DEPRESSION
     Dosage: UNK, UNK
     Dates: start: 20090406, end: 20090525
  2. DULOXETINE HYDROCHLORIDE [Suspect]
     Dosage: UNK, UNK
     Dates: start: 20090528, end: 20090601
  3. ESCITALOPRAM [Suspect]
     Indication: MAJOR DEPRESSION
     Dates: start: 20090310, end: 20090601

REACTIONS (2)
  - KIDNEY INFECTION [None]
  - URINARY RETENTION [None]
